FAERS Safety Report 5018173-9 (Version None)
Quarter: 2006Q2

REPORT INFORMATION
  Report Type: 
  Country: None (occurrence: None)
  Receive Date: 20060530
  Receipt Date: 20060517
  Transmission Date: 20061013
  Serious: Yes (Other)
  Sender: FDA-Public Use
  Company Number: 2006063434

PATIENT
  Age: 29 Year
  Sex: Female
  Weight: 67.8 kg

DRUGS (3)
  1. GABAPENTIN [Suspect]
     Indication: EPILEPSY
     Dosage: 2400 MG (800 MG, 3 IN 1 D), ORAL
     Route: 048
     Dates: start: 19980101
  2. GABAPENTIN [Suspect]
     Indication: NEURALGIA
     Dosage: 2400 MG (800 MG, 3 IN 1 D), ORAL
     Route: 048
     Dates: start: 19980101
  3. CLONAZEPAM [Concomitant]

REACTIONS (3)
  - FALL [None]
  - SENSORY LOSS [None]
  - THERMAL BURN [None]
